FAERS Safety Report 6889499-9 (Version None)
Quarter: 2010Q3

REPORT INFORMATION
  Report Type: 
  Country: None (occurrence: None)
  Receive Date: 20100730
  Receipt Date: 20080306
  Transmission Date: 20110219
  Serious: No
  Sender: FDA-Public Use
  Company Number: US-PFIZER INC-2008022166

PATIENT
  Sex: Male
  Weight: 81.818 kg

DRUGS (7)
  1. LIPITOR [Suspect]
     Indication: BLOOD CHOLESTEROL INCREASED
     Route: 048
     Dates: start: 19990101
  2. GLUCOPHAGE [Interacting]
  3. GLUCOPHAGE [Interacting]
  4. COUMADIN [Concomitant]
  5. DIOVAN HCT [Concomitant]
  6. SITAGLIPTIN [Concomitant]
  7. MENCALISVIT [Concomitant]

REACTIONS (3)
  - ABDOMINAL DISCOMFORT [None]
  - DRUG INTERACTION [None]
  - INTENTIONAL DRUG MISUSE [None]
